FAERS Safety Report 21086978 (Version 1)
Quarter: 2022Q3

REPORT INFORMATION
  Report Type: Spontaneous
  Country: US (occurrence: None)
  Receive Date: 20220714
  Receipt Date: 20220714
  Transmission Date: 20221027
  Serious: Yes (Life-Threatening, Hospitalization)
  Sender: FDA-Public Use
  Company Number: None

PATIENT
  Age: 67 Year
  Sex: Female

DRUGS (1)
  1. BUPROPION HYDROCHLORIDE [Suspect]
     Active Substance: BUPROPION HYDROCHLORIDE
     Dates: start: 20220529

REACTIONS (6)
  - Confusional state [None]
  - Nausea [None]
  - Nervousness [None]
  - Vomiting [None]
  - Head discomfort [None]
  - Coordination abnormal [None]

NARRATIVE: CASE EVENT DATE: 20220529
